FAERS Safety Report 25434172 (Version 2)
Quarter: 2025Q3

REPORT INFORMATION
  Report Type: Spontaneous
  Country: US (occurrence: US)
  Receive Date: 20250613
  Receipt Date: 20250819
  Transmission Date: 20251020
  Serious: Yes (Other)
  Sender: SANOFI AVENTIS
  Company Number: US-SA-2025SA167488

PATIENT
  Age: 23 Year
  Sex: Female

DRUGS (12)
  1. THYMOGLOBULIN [Suspect]
     Active Substance: LAPINE T-LYMPHOCYTE IMMUNE GLOBULIN
     Indication: Prophylaxis against transplant rejection
     Route: 065
     Dates: start: 20250424, end: 20250424
  2. THYMOGLOBULIN [Suspect]
     Active Substance: LAPINE T-LYMPHOCYTE IMMUNE GLOBULIN
     Route: 065
     Dates: start: 20250427, end: 20250427
  3. THYMOGLOBULIN [Suspect]
     Active Substance: LAPINE T-LYMPHOCYTE IMMUNE GLOBULIN
     Route: 065
     Dates: start: 20250430, end: 20250430
  4. THYMOGLOBULIN [Suspect]
     Active Substance: LAPINE T-LYMPHOCYTE IMMUNE GLOBULIN
     Route: 065
     Dates: start: 20250501, end: 20250501
  5. TACROLIMUS [Concomitant]
     Active Substance: TACROLIMUS
     Route: 048
     Dates: start: 20250424, end: 20250425
  6. VALGANCICLOVIR [Concomitant]
     Active Substance: VALGANCICLOVIR
     Dates: start: 20250505
  7. CYCLOSPORINE [Concomitant]
     Active Substance: CYCLOSPORINE
     Dates: start: 20250525
  8. SOLIRIS [Concomitant]
     Active Substance: ECULIZUMAB
     Indication: Thrombotic microangiopathy
     Dates: start: 20250427, end: 20250427
  9. SOLIRIS [Concomitant]
     Active Substance: ECULIZUMAB
     Dates: start: 20250428, end: 20250428
  10. SOLIRIS [Concomitant]
     Active Substance: ECULIZUMAB
     Dates: start: 20250429, end: 20250429
  11. SOLIRIS [Concomitant]
     Active Substance: ECULIZUMAB
     Dates: start: 20250504, end: 20250504
  12. MYCOPHENOLIC ACID [Concomitant]
     Active Substance: MYCOPHENOLIC ACID
     Dates: start: 20250506

REACTIONS (6)
  - Thrombotic microangiopathy [Unknown]
  - Thrombocytopenia [Recovering/Resolving]
  - Blood lactate dehydrogenase increased [Unknown]
  - Haptoglobin decreased [Unknown]
  - Red blood cell schistocytes present [Unknown]
  - Anaemia [Unknown]

NARRATIVE: CASE EVENT DATE: 20250101
